FAERS Safety Report 6815200 (Version 2)
Quarter: 2013Q1

REPORT INFORMATION
  Report Type: Spontaneous
  Country: None (occurrence: None)
  Receive Date: 20081107
  Receipt Date: 20130108
  Transmission Date: 20140127
  Serious: Yes (Hospitalization, Other)
  Sender: FDA-Public Use
  Company Number: 2008AP002986

PATIENT
  Age: 71 Year
  Sex: Male

DRUGS (14)
  1. TRIMONIL [Suspect]
     Indication: EPILEPSY
     Dosage: 300 MG;PO
     Route: 048
     Dates: start: 20000901, end: 20080923
  2. SALMETEROL XINAFOATE (SALMETEROL XINAFOATE) [Concomitant]
  3. ZOPICLONE (ZOPICLONE) [Concomitant]
  4. CANDESARTAN CILEXETIL [Concomitant]
  5. HYDROCHLOROTHIAZIDE (HYDROCHLOROTHIAZIDE) [Concomitant]
  6. ACETAMINOPHEN [Concomitant]
  7. CODEINE (CODEINE) [Concomitant]
  8. OXAZEPAM [Concomitant]
  9. ACETYLSALICYLIC ACID (ACETYLSALICYLIC ACID) [Concomitant]
  10. MAGNESIUM OXIDE (MAGNESIUM OXIDE) [Concomitant]
  11. LACTULOSE [Concomitant]
  12. GLIMEPIRIDE (GLIMEPIRIDE) [Concomitant]
  13. BISACODYL (BISACODYL) [Concomitant]
  14. SIMVASTATIN [Concomitant]

REACTIONS (9)
  - Organising pneumonia [None]
  - Respiratory failure [None]
  - Cor pulmonale [None]
  - Aortic stenosis [None]
  - Depression [None]
  - Pulmonary hypertension [None]
  - Culture urine positive [None]
  - Bacterial infection [None]
  - Organising pneumonia [None]
